FAERS Safety Report 10639036 (Version 1)
Quarter: 2014Q4

REPORT INFORMATION
  Report Type: Spontaneous
  Country: US (occurrence: US)
  Receive Date: 20141208
  Receipt Date: 20141208
  Transmission Date: 20150529
  Serious: Yes (Hospitalization)
  Sender: FDA-Public Use
  Company Number: US-GILEAD-2014-0125426

PATIENT
  Age: 51 Year
  Sex: Female

DRUGS (12)
  1. NIRAVAM [Concomitant]
     Active Substance: ALPRAZOLAM
  2. ADDERALL [Concomitant]
     Active Substance: AMPHETAMINE ASPARTATE\AMPHETAMINE SULFATE\DEXTROAMPHETAMINE SACCHARATE\DEXTROAMPHETAMINE SULFATE
  3. WARFARIN [Concomitant]
     Active Substance: WARFARIN
  4. SAVELLA [Concomitant]
     Active Substance: MILNACIPRAN HYDROCHLORIDE
  5. OXYMORPHONE [Concomitant]
     Active Substance: OXYMORPHONE
  6. GABAPENTIN. [Concomitant]
     Active Substance: GABAPENTIN
  7. TOPAMAX [Concomitant]
     Active Substance: TOPIRAMATE
  8. LETAIRIS [Suspect]
     Active Substance: AMBRISENTAN
     Indication: PULMONARY ARTERIAL HYPERTENSION
     Dosage: 5 MG, UNK
     Route: 065
     Dates: start: 20141030
  9. NUVIGIL [Concomitant]
     Active Substance: ARMODAFINIL
  10. MAXALT [Concomitant]
     Active Substance: RIZATRIPTAN BENZOATE
  11. LEVOTHYROXINE [Concomitant]
     Active Substance: LEVOTHYROXINE
  12. FUROSEMIDE. [Concomitant]
     Active Substance: FUROSEMIDE

REACTIONS (1)
  - Dyspnoea [Not Recovered/Not Resolved]

NARRATIVE: CASE EVENT DATE: 20141201
